FAERS Safety Report 11806743 (Version 2)
Quarter: 2016Q2

REPORT INFORMATION
  Report Type: Spontaneous
  Country: US (occurrence: US)
  Receive Date: 20151207
  Receipt Date: 20160620
  Transmission Date: 20160815
  Serious: No
  Sender: FDA-Public Use
  Company Number: US-ASTRAZENECA-2015SF20356

PATIENT
  Age: 682 Month
  Sex: Female
  Weight: 115.7 kg

DRUGS (3)
  1. 25 OTHER DIFFERENT MEDICATIONS [Concomitant]
  2. TUDORZA PRESSAIR [Suspect]
     Active Substance: ACLIDINIUM BROMIDE
     Indication: EMPHYSEMA
     Route: 055
     Dates: start: 20151115
  3. ADVAIR HFA [Concomitant]
     Active Substance: FLUTICASONE PROPIONATE\SALMETEROL XINAFOATE

REACTIONS (5)
  - Product taste abnormal [Unknown]
  - Drug dose omission [Unknown]
  - Dyspnoea [Unknown]
  - Intentional device misuse [Unknown]
  - Product quality issue [Unknown]

NARRATIVE: CASE EVENT DATE: 201511
